FAERS Safety Report 14658210 (Version 1)
Quarter: 2018Q1

REPORT INFORMATION
  Report Type: Spontaneous
  Country: US (occurrence: US)
  Receive Date: 20180320
  Receipt Date: 20180320
  Transmission Date: 20180509
  Serious: Yes (Hospitalization)
  Sender: FDA-Public Use
  Company Number: US-MALLINCKRODT-T201801023

PATIENT
  Sex: Male
  Weight: 81 kg

DRUGS (2)
  1. FENTANYL TRANSDERMAL SYSTEM [Suspect]
     Active Substance: FENTANYL
     Indication: PRODUCT USED FOR UNKNOWN INDICATION
     Dosage: FOUR PATCHES OF LOWER DOSE, CONTINUED FOR THREE DAYS
     Route: 062
     Dates: start: 2016, end: 2016
  2. OXYCODONE [Suspect]
     Active Substance: OXYCODONE
     Indication: PRODUCT USED FOR UNKNOWN INDICATION
     Dosage: UNK
     Route: 048

REACTIONS (6)
  - Diverticular perforation [Unknown]
  - Constipation [Unknown]
  - Asthenia [Unknown]
  - Photopsia [Unknown]
  - Feeling abnormal [Unknown]
  - Bedridden [Unknown]

NARRATIVE: CASE EVENT DATE: 2016
